FAERS Safety Report 16082337 (Version 1)
Quarter: 2019Q1

REPORT INFORMATION
  Report Type: Report from Study
  Country: US (occurrence: US)
  Receive Date: 20190318
  Receipt Date: 20190318
  Transmission Date: 20190418
  Serious: Yes (Other)
  Sender: FDA-Public Use
  Company Number: US-B.I. PHARMACEUTICALS,INC./RIDGEFIELD-2018-BI-061869

PATIENT
  Age: 66 Year
  Sex: Female

DRUGS (1)
  1. OFEV [Suspect]
     Active Substance: NINTEDANIB
     Indication: IDIOPATHIC PULMONARY FIBROSIS
     Route: 048
     Dates: start: 20181024, end: 20190311

REACTIONS (5)
  - Myalgia [Recovered/Resolved]
  - Dyspnoea [Not Recovered/Not Resolved]
  - Arthralgia [Recovered/Resolved]
  - Diarrhoea [Not Recovered/Not Resolved]
  - Constipation [Not Recovered/Not Resolved]

NARRATIVE: CASE EVENT DATE: 201811
